FAERS Safety Report 18803372 (Version 3)
Quarter: 2021Q1

REPORT INFORMATION
  Report Type: Report from Study
  Country: DE (occurrence: DE)
  Receive Date: 20210128
  Receipt Date: 20210310
  Transmission Date: 20210419
  Serious: Yes (Hospitalization)
  Sender: FDA-Public Use
  Company Number: DE-JNJFOC-20210142746

PATIENT
  Age: 73 Year
  Sex: Female

DRUGS (1)
  1. VENTAVIS [Suspect]
     Active Substance: ILOPROST
     Indication: PULMONARY ARTERIAL HYPERTENSION
     Route: 055
     Dates: start: 20180611

REACTIONS (5)
  - Oedema peripheral [Unknown]
  - Inappropriate schedule of product administration [Unknown]
  - Abdominal pain [Not Recovered/Not Resolved]
  - Lung disorder [Unknown]
  - Renal function test abnormal [Unknown]

NARRATIVE: CASE EVENT DATE: 20210114
